FAERS Safety Report 4744419-8 (Version None)
Quarter: 2005Q3

REPORT INFORMATION
  Report Type: 
  Country: None (occurrence: None)
  Receive Date: 20050809
  Receipt Date: 20050801
  Transmission Date: 20060218
  Serious: Yes (Other)
  Sender: FDA-Public Use
  Company Number: 2005058481

PATIENT
  Sex: Female

DRUGS (18)
  1. BEXTRA [Suspect]
     Indication: ARTHRALGIA
     Dates: start: 20010101
  2. VIOXX [Suspect]
     Indication: BACK PAIN
     Dosage: 25 MG (25 MG, 1IN 1 D)
     Route: 048
     Dates: start: 20010601
  3. VIOXX [Suspect]
     Indication: OSTEOARTHRITIS
     Dosage: 25 MG (25 MG, 1IN 1 D)
     Route: 048
     Dates: start: 20010601
  4. ZOCOR [Concomitant]
  5. ALL OTHER THERAPEUTIC PRODUCTS [Concomitant]
  6. FOLIC ACID [Concomitant]
  7. ATENOLOL [Concomitant]
  8. DICLOFENAC SODIUM [Concomitant]
  9. SYNTHROID [Concomitant]
  10. EVISTA [Concomitant]
  11. ACIPHEX [Concomitant]
  12. LISINOPRIL [Concomitant]
  13. ACETYLSALICYLIC ACID SRT [Concomitant]
  14. FOSAMAX [Concomitant]
  15. PRAVACHOL [Concomitant]
  16. ACCUPRIL [Concomitant]
  17. RANITIDINE HYDROCHLORIDE [Concomitant]
  18. ISOSORBIDE (ISOSORBIDE) [Concomitant]

REACTIONS (1)
  - STENT PLACEMENT [None]
